FAERS Safety Report 6878083-9 (Version None)
Quarter: 2010Q2

REPORT INFORMATION
  Report Type: 
  Country: None (occurrence: None)
  Receive Date: 20100616
  Receipt Date: 20091230
  Transmission Date: 20101027
  Serious: No
  Sender: FDA-Public Use
  Company Number: DSA_41791_2009

PATIENT
  Sex: Female

DRUGS (4)
  1. XENAZINE [Suspect]
     Indication: TARDIVE DYSKINESIA
     Dosage: (12.5 MG QID)
     Dates: start: 20090507, end: 20090507
  2. CLONAZEPAM [Concomitant]
  3. VICODIN [Concomitant]
  4. DUONEB [Concomitant]

REACTIONS (1)
  - AGGRESSION [None]
